FAERS Safety Report 13544036 (Version 1)
Quarter: 2017Q2

REPORT INFORMATION
  Report Type: Report from Study
  Country: US (occurrence: US)
  Receive Date: 20170515
  Receipt Date: 20170515
  Transmission Date: 20170830
  Serious: Yes (Hospitalization)
  Sender: FDA-Public Use
  Company Number: US-GILEAD-2017-0272431

PATIENT
  Age: 65 Year
  Sex: Female

DRUGS (3)
  1. ADEMPAS [Concomitant]
     Active Substance: RIOCIGUAT
  2. AMBRISENTAN [Suspect]
     Active Substance: AMBRISENTAN
     Indication: PRODUCT USED FOR UNKNOWN INDICATION
     Dosage: 10 MG, QD
     Route: 065
     Dates: start: 20150609
  3. VENTAVIS [Concomitant]
     Active Substance: ILOPROST

REACTIONS (3)
  - Dyspnoea [Recovering/Resolving]
  - Catheterisation cardiac abnormal [Unknown]
  - Asthenia [Recovering/Resolving]
